FAERS Safety Report 24980789 (Version 1)
Quarter: 2025Q1

REPORT INFORMATION
  Report Type: Spontaneous
  Country: US (occurrence: None)
  Receive Date: 20250215
  Receipt Date: 20250215
  Transmission Date: 20250409
  Serious: Yes (Hospitalization)
  Sender: FDA-CTU
  Company Number: None

PATIENT
  Age: 29 Year
  Sex: Female
  Weight: 99.79 kg

DRUGS (8)
  1. CYCLOPHOSPHAMIDE [Suspect]
     Active Substance: CYCLOPHOSPHAMIDE
     Dates: end: 20250112
  2. CYTARABINE [Suspect]
     Active Substance: CYTARABINE
     Dates: end: 20250131
  3. DEXAMETHASONE [Suspect]
     Active Substance: DEXAMETHASONE
     Dates: end: 20250112
  4. DOXORUBICIN HYDROCHLORIDE [Suspect]
     Active Substance: DOXORUBICIN HYDROCHLORIDE
  5. MESNA [Suspect]
     Active Substance: MESNA
     Dates: end: 20250112
  6. METHOTREXATE [Suspect]
     Active Substance: METHOTREXATE
     Dates: end: 20250129
  7. PONATINIB [Suspect]
     Active Substance: PONATINIB
     Dates: end: 20250214
  8. VINCRISTINE SULFATE [Suspect]
     Active Substance: VINCRISTINE SULFATE
     Dates: end: 20250119

REACTIONS (13)
  - Febrile neutropenia [None]
  - Rhinovirus infection [None]
  - Enterovirus infection [None]
  - Cough [None]
  - Vulval cellulitis [None]
  - Vulvitis [None]
  - Uterine haemorrhage [None]
  - Fatigue [None]
  - Decreased appetite [None]
  - Platelet count decreased [None]
  - Catheter site erythema [None]
  - Catheter site discharge [None]
  - Catheter site infection [None]

NARRATIVE: CASE EVENT DATE: 20250206
